FAERS Safety Report 4677656-1 (Version None)
Quarter: 2005Q2

REPORT INFORMATION
  Report Type: 
  Country: None (occurrence: None)
  Receive Date: 20050531
  Receipt Date: 20050519
  Transmission Date: 20051028
  Serious: Yes (Other)
  Sender: FDA-Public Use
  Company Number: US-BRISTOL-MYERS SQUIBB COMPANY-12981817

PATIENT
  Age: 44 Year
  Sex: Male

DRUGS (4)
  1. SERZONE [Suspect]
     Indication: DEPRESSION
  2. LORCET-HD [Concomitant]
  3. XANAX [Concomitant]
  4. TRAZODONE HCL [Concomitant]

REACTIONS (4)
  - ANXIETY [None]
  - HEPATIC ENZYME INCREASED [None]
  - HEPATITIS C [None]
  - HEPATOCELLULAR DAMAGE [None]
